FAERS Safety Report 25870718 (Version 1)
Quarter: 2025Q4

REPORT INFORMATION
  Report Type: Spontaneous
  Country: US (occurrence: US)
  Receive Date: 20251001
  Receipt Date: 20251001
  Transmission Date: 20260118
  Serious: Yes (Other)
  Sender: RECKITT BENCKISER
  Company Number: US-Indivior Limited-INDV-158204-2024

PATIENT

DRUGS (2)
  1. SUBLOCADE [Suspect]
     Active Substance: BUPRENORPHINE
     Indication: Product used for unknown indication
     Dosage: UNK, QMO
     Route: 065
  2. SUBLOCADE [Suspect]
     Active Substance: BUPRENORPHINE

REACTIONS (3)
  - Injection site abscess [Unknown]
  - Wrong technique in product usage process [Recovered/Resolved]
  - Drug delivery system removal [Recovered/Resolved]
